FAERS Safety Report 8808735 (Version 1)
Quarter: 2012Q4

REPORT INFORMATION
  Report Type: Spontaneous
  Country: DK (occurrence: None)
  Receive Date: 20120920
  Receipt Date: 20120920
  Transmission Date: 20130627
  Serious: Yes (Hospitalization)
  Sender: FDA-Public Use
  Company Number: 2012MA011240

PATIENT
  Age: 69 Year
  Sex: Female

DRUGS (19)
  1. MIRTAZAPINE [Suspect]
     Indication: DRUG USE FOR UNKNOWN INDICATION
     Route: 048
  2. LOSARTAN POTASSIUM [Suspect]
     Indication: DRUG USE FOR UNKNOWN INDICATION
     Route: 048
  3. NOVORAPID [Concomitant]
  4. EUTHYROX [Concomitant]
  5. ZOTON [Concomitant]
  6. AMLODIPIN ACCORD [Concomitant]
  7. NATRIUMKLORID [Concomitant]
  8. BEHEPAN [Concomitant]
  9. XANOR [Concomitant]
  10. TREO COMP [Concomitant]
  11. TROMBYL [Concomitant]
  12. KREDEX [Concomitant]
  13. LAKTULOS APELSIN MEDA [Concomitant]
  14. IMOVANE [Concomitant]
  15. SPIRONOLAKTON [Concomitant]
  16. PERSANTIN DEPOT [Concomitant]
  17. LANTUS [Concomitant]
  18. SIMVASTATIN [Concomitant]
  19. CITALOPRAM [Suspect]
     Route: 048

REACTIONS (2)
  - Hyponatraemia [None]
  - Polydipsia [None]
